FAERS Safety Report 9713760 (Version 1)
Quarter: 2013Q4

REPORT INFORMATION
  Report Type: Spontaneous
  Country: IT (occurrence: IT)
  Receive Date: 20131126
  Receipt Date: 20131126
  Transmission Date: 20140711
  Serious: Yes (Hospitalization)
  Sender: FDA-Public Use
  Company Number: IT-ASTRAZENECA-2013SE85093

PATIENT
  Age: 16854 Day
  Sex: Female

DRUGS (3)
  1. PROVISACOR [Suspect]
     Indication: HYPERCHOLESTEROLAEMIA
     Route: 048
     Dates: start: 20130501, end: 20130515
  2. ESOPRAL [Concomitant]
     Route: 048
  3. DROPAXIN [Concomitant]
     Route: 048

REACTIONS (5)
  - Diarrhoea [Recovered/Resolved]
  - Oedema [Recovered/Resolved]
  - Pyrexia [Recovered/Resolved]
  - Arthralgia [Recovered/Resolved]
  - Proteinuria [Recovered/Resolved]
